FAERS Safety Report 25101780 (Version 3)
Quarter: 2025Q2

REPORT INFORMATION
  Report Type: Report from Study
  Country: US (occurrence: US)
  Receive Date: 20250320
  Receipt Date: 20250507
  Transmission Date: 20250717
  Serious: Yes (Other)
  Sender: BAYER HEALTHCARE PHARMACEUTICALS INC.
  Company Number: US-BAYER-2025A035629

PATIENT
  Sex: Female
  Weight: 70.295 kg

DRUGS (49)
  1. ADEMPAS [Suspect]
     Active Substance: RIOCIGUAT
     Indication: Pulmonary arterial hypertension
     Dates: start: 20210513
  2. ADEMPAS [Suspect]
     Active Substance: RIOCIGUAT
     Indication: Pulmonary arterial hypertension
     Dosage: 1 MG, TID
     Route: 048
  3. PILOCARPINE HYDROCHLORIDE [Concomitant]
     Active Substance: PILOCARPINE HYDROCHLORIDE
  4. LEVOCETIRIZINE DIHYDROCHLORIDE [Concomitant]
     Active Substance: LEVOCETIRIZINE DIHYDROCHLORIDE
  5. METHOCARBAMOL [Concomitant]
     Active Substance: METHOCARBAMOL
  6. MELOXICAM [Concomitant]
     Active Substance: MELOXICAM
  7. DOCUSATE SODIUM [Concomitant]
     Active Substance: DOCUSATE SODIUM
  8. LUBIPROSTONE [Concomitant]
     Active Substance: LUBIPROSTONE
  9. TRAZODONE HCL [Concomitant]
     Active Substance: TRAZODONE HYDROCHLORIDE
  10. Dulcolax [Concomitant]
  11. ACETAMINOPHEN [Concomitant]
     Active Substance: ACETAMINOPHEN
  12. POTASSIUM CHLORIDE [Concomitant]
     Active Substance: POTASSIUM CHLORIDE
  13. TYLENOL EXTRA STRENGTH [Concomitant]
     Active Substance: ACETAMINOPHEN
  14. TIZANIDINE HYDROCHLORIDE [Concomitant]
     Active Substance: TIZANIDINE HYDROCHLORIDE
  15. LEVOTHYROXINE [Concomitant]
     Active Substance: LEVOTHYROXINE
  16. LYRICA [Concomitant]
     Active Substance: PREGABALIN
  17. VYZULTA [Concomitant]
     Active Substance: LATANOPROSTENE BUNOD
  18. TRELEGY ELLIPTA [Concomitant]
     Active Substance: FLUTICASONE FUROATE\UMECLIDINIUM BROMIDE\VILANTEROL TRIFENATATE
  19. LASIX [Concomitant]
     Active Substance: FUROSEMIDE
  20. SERTRALINE HYDROCHLORIDE [Concomitant]
     Active Substance: SERTRALINE HYDROCHLORIDE
  21. ESOMEPRAZOLE MAGNESIUM [Concomitant]
     Active Substance: ESOMEPRAZOLE MAGNESIUM
  22. ELIQUIS [Concomitant]
     Active Substance: APIXABAN
  23. TIMOLOL MALEATE [Concomitant]
     Active Substance: TIMOLOL MALEATE
  24. Omega [Concomitant]
  25. PROAIR HFA [Concomitant]
     Active Substance: ALBUTEROL SULFATE
  26. SYMBICORT [Concomitant]
     Active Substance: BUDESONIDE\FORMOTEROL FUMARATE DIHYDRATE
  27. MELATONIN [Concomitant]
     Active Substance: MELATONIN
  28. OPSUMIT [Concomitant]
     Active Substance: MACITENTAN
  29. METOPROLOL SUCCINATE [Concomitant]
     Active Substance: METOPROLOL SUCCINATE
  30. AIRSUPRA [Concomitant]
     Active Substance: ALBUTEROL SULFATE\BUDESONIDE
  31. TRAMADOL HCL [Concomitant]
     Active Substance: TRAMADOL HYDROCHLORIDE
  32. FAMOTIDINE [Concomitant]
     Active Substance: FAMOTIDINE
  33. VITAMINS [Concomitant]
     Active Substance: VITAMINS
  34. METFORMIN HYDROCHLORIDE [Concomitant]
     Active Substance: METFORMIN HYDROCHLORIDE
  35. HERBALS\TURMERIC [Concomitant]
     Active Substance: HERBALS\TURMERIC
  36. PROBIOTICS NOS [Concomitant]
     Active Substance: PROBIOTICS NOS
  37. BENADRYL [Concomitant]
     Active Substance: DIPHENHYDRAMINE HYDROCHLORIDE
  38. BUSPIRONE HCL [Concomitant]
     Active Substance: BUSPIRONE HYDROCHLORIDE
  39. CYCLOBENZAPRINE HYDROCHLORIDE [Concomitant]
     Active Substance: CYCLOBENZAPRINE HYDROCHLORIDE
  40. DULOXETINE HYDROCHLORIDE [Concomitant]
     Active Substance: DULOXETINE HYDROCHLORIDE
  41. FLUCONAZOLE [Concomitant]
     Active Substance: FLUCONAZOLE
  42. ADVAIR HFA [Concomitant]
     Active Substance: FLUTICASONE PROPIONATE\SALMETEROL XINAFOATE
  43. Tussin dm clear [Concomitant]
  44. ASPIRIN [Concomitant]
     Active Substance: ASPIRIN
  45. BENZONATATE [Concomitant]
     Active Substance: BENZONATATE
  46. ONDANSETRON HYDROCHLORIDE [Concomitant]
     Active Substance: ONDANSETRON HYDROCHLORIDE
  47. JANUVIA [Concomitant]
     Active Substance: SITAGLIPTIN PHOSPHATE
  48. EFFEXOR [Concomitant]
     Active Substance: VENLAFAXINE HYDROCHLORIDE
  49. VENLAFAXINE [Suspect]
     Active Substance: VENLAFAXINE HYDROCHLORIDE

REACTIONS (5)
  - Accident [None]
  - Spinal cord injury [None]
  - Seasonal allergy [Not Recovered/Not Resolved]
  - Family stress [Recovered/Resolved]
  - Decreased activity [None]
